FAERS Safety Report 23744120 (Version 5)
Quarter: 2024Q4

REPORT INFORMATION
  Report Type: Report from Study
  Country: CA (occurrence: CA)
  Receive Date: 20240415
  Receipt Date: 20241126
  Transmission Date: 20250114
  Serious: Yes (Other)
  Sender: TAKEDA
  Company Number: CA-TAKEDA-2022TUS085105

PATIENT
  Age: 55 Year
  Sex: Male

DRUGS (5)
  1. VEDOLIZUMAB [Suspect]
     Active Substance: VEDOLIZUMAB
     Indication: Colitis ulcerative
     Dosage: 300 MILLIGRAM
  2. VEDOLIZUMAB [Suspect]
     Active Substance: VEDOLIZUMAB
     Dosage: 300 MILLIGRAM
  3. VEDOLIZUMAB [Suspect]
     Active Substance: VEDOLIZUMAB
     Dosage: 300 MILLIGRAM, Q4WEEKS
     Dates: start: 20240826
  4. Salofalk [Concomitant]
     Dosage: UNK
  5. PENTASA [Concomitant]
     Active Substance: MESALAMINE
     Dosage: 1 MILLIGRAM, BID

REACTIONS (6)
  - Haematochezia [Unknown]
  - Rectal ulcer [Unknown]
  - Frequent bowel movements [Unknown]
  - Social problem [Unknown]
  - Impaired work ability [Unknown]
  - Off label use [Unknown]

NARRATIVE: CASE EVENT DATE: 20240826
